FAERS Safety Report 9896246 (Version 2)
Quarter: 2014Q1

REPORT INFORMATION
  Report Type: Spontaneous
  Country: US (occurrence: US)
  Receive Date: 20140213
  Receipt Date: 20140213
  Transmission Date: 20141002
  Serious: No
  Sender: FDA-Public Use
  Company Number: US-BRISTOL-MYERS SQUIBB COMPANY-17428350

PATIENT
  Age: 63 Year
  Sex: Female

DRUGS (4)
  1. ABATACEPT SUBQ INJECTION 125MG/ML [Suspect]
     Indication: RHEUMATOID ARTHRITIS
     Dosage: 125MG/1ML
     Route: 058
     Dates: start: 20121129, end: 20130312
  2. DIOVAN HCT [Concomitant]
     Dosage: DIOVAN HCT 80/12.5 UNITS NOS
  3. INDERAL LA [Concomitant]
     Dosage: CAPS
  4. VITAMIN D [Concomitant]
     Dosage: 1000UNITS

REACTIONS (3)
  - Headache [Recovered/Resolved]
  - Asthenia [Unknown]
  - Stress [Unknown]
